FAERS Safety Report 15543071 (Version 1)
Quarter: 2018Q4

REPORT INFORMATION
  Report Type: Spontaneous
  Country: ES (occurrence: ES)
  Receive Date: 20181023
  Receipt Date: 20181023
  Transmission Date: 20190205
  Serious: Yes (Death, Hospitalization)
  Sender: FDA-Public Use
  Company Number: ES-PFIZER INC-2018429673

PATIENT
  Age: 73 Year
  Sex: Female

DRUGS (8)
  1. PARACETAMOL [Concomitant]
     Active Substance: ACETAMINOPHEN
     Dosage: UNK
  2. EPANUTIN [Suspect]
     Active Substance: PHENYTOIN SODIUM
     Indication: STATUS EPILEPTICUS
     Dosage: 300 MG, 1X/DAY
     Route: 048
     Dates: start: 20180508, end: 20180628
  3. VANCOMYCIN HCL [Concomitant]
     Active Substance: VANCOMYCIN HYDROCHLORIDE
     Dosage: UNK
  4. RISPERDAL [Concomitant]
     Active Substance: RISPERIDONE
     Dosage: UNK
  5. DITROPAN [Concomitant]
     Active Substance: OXYBUTYNIN CHLORIDE
     Dosage: UNK
  6. AUGMENTINE PLUS [Concomitant]
     Active Substance: AMOXICILLIN\CLAVULANIC ACID
  7. URBASON [METHYLPREDNISOLONE] [Concomitant]
     Dosage: UNK
  8. INDAPAMIDE. [Concomitant]
     Active Substance: INDAPAMIDE
     Dosage: UNK

REACTIONS (4)
  - Drug reaction with eosinophilia and systemic symptoms [Fatal]
  - Distributive shock [Fatal]
  - Rash macular [Fatal]
  - Toxic epidermal necrolysis [Fatal]

NARRATIVE: CASE EVENT DATE: 20180618
